FAERS Safety Report 9257680 (Version 2)
Quarter: 2013Q3

REPORT INFORMATION
  Report Type: Spontaneous
  Country: GR (occurrence: GR)
  Receive Date: 20130426
  Receipt Date: 20130717
  Transmission Date: 20140515
  Serious: Yes (Hospitalization)
  Sender: FDA-Public Use
  Company Number: GR-AMGEN-GRCSP2013028460

PATIENT
  Age: 74 Year
  Sex: Female

DRUGS (8)
  1. PROLIA [Suspect]
     Indication: OSTEOPOROSIS
     Dosage: 60 MG, ONE TIME DOSE
     Route: 058
     Dates: start: 20120715, end: 20120715
  2. GLIVEC [Suspect]
     Indication: CHRONIC MYELOID LEUKAEMIA
     Dosage: 1 DF, QD
     Route: 048
     Dates: start: 200901
  3. DILATREND [Concomitant]
  4. ONE ALPHA [Concomitant]
  5. PROTHURIL [Concomitant]
  6. TRIATEC PLUS [Concomitant]
  7. CALCIORAL D3 [Concomitant]
  8. BISPHOSPHONATES [Concomitant]
     Indication: OSTEOPOROSIS

REACTIONS (1)
  - Osteonecrosis of jaw [Unknown]
